FAERS Safety Report 13110388 (Version 1)
Quarter: 2017Q1

REPORT INFORMATION
  Report Type: Spontaneous
  Country: US (occurrence: US)
  Receive Date: 20170112
  Receipt Date: 20170112
  Transmission Date: 20170428
  Serious: No
  Sender: FDA-Public Use
  Company Number: US-ROCHE-1100716

PATIENT
  Age: 55 Year
  Sex: Male

DRUGS (9)
  1. ACTIVASE [Suspect]
     Active Substance: ALTEPLASE
     Indication: ACUTE MYOCARDIAL INFARCTION
     Route: 040
  2. NITROGLYCERIN DRIP [Concomitant]
     Route: 065
  3. HEPARIN (BOLUS) [Concomitant]
     Route: 040
  4. ASA [Concomitant]
     Active Substance: ASPIRIN
     Route: 048
  5. LIDOCAINE. [Concomitant]
     Active Substance: LIDOCAINE
     Route: 042
  6. NITROGLYCERIN DRIP [Concomitant]
     Route: 065
  7. MORPHINE SO4 [Concomitant]
     Route: 042
  8. NITROGLYCERIN DRIP [Concomitant]
     Route: 065
  9. NITROGLYCERIN DRIP [Concomitant]
     Route: 065

REACTIONS (1)
  - Electrocardiogram ST segment elevation [Not Recovered/Not Resolved]
